FAERS Safety Report 24882500 (Version 1)
Quarter: 2025Q1

REPORT INFORMATION
  Report Type: Spontaneous
  Country: US (occurrence: US)
  Receive Date: 20250124
  Receipt Date: 20250124
  Transmission Date: 20250409
  Serious: No
  Sender: NAARI PHARMA
  Company Number: US-NAARI PTE LIMITED-2024NP000057

PATIENT
  Sex: Female

DRUGS (1)
  1. NORETHINDRONE [Suspect]
     Active Substance: NORETHINDRONE
     Indication: Menstrual cycle management
     Route: 048

REACTIONS (2)
  - Muscle spasms [Unknown]
  - Off label use [Unknown]
